FAERS Safety Report 25954785 (Version 2)
Quarter: 2025Q4

REPORT INFORMATION
  Report Type: Spontaneous
  Country: US (occurrence: US)
  Receive Date: 20251024
  Receipt Date: 20251230
  Transmission Date: 20260118
  Serious: No
  Sender: ABBVIE
  Company Number: US-ABBVIE-6507712

PATIENT

DRUGS (1)
  1. DURYSTA [Suspect]
     Active Substance: BIMATOPROST
     Indication: Product used for unknown indication
     Dosage: 10 MCG PEN?MANUFACTURE DATE: 21 AUG 2024?DOSE FORM -PELLET
     Route: 047

REACTIONS (1)
  - No adverse event [Unknown]
